FAERS Safety Report 4631495-6 (Version None)
Quarter: 2005Q2

REPORT INFORMATION
  Report Type: 
  Country: None (occurrence: None)
  Receive Date: 20050407
  Receipt Date: 20050321
  Transmission Date: 20051028
  Serious: Yes (Life-Threatening, Hospitalization)
  Sender: FDA-Public Use
  Company Number: 6013969

PATIENT
  Age: 67 Year
  Sex: Female

DRUGS (4)
  1. BISOPROLOL FUMARATE [Suspect]
     Indication: CARDIOVASCULAR DISORDER
  2. BUMETANIDE [Suspect]
  3. ENALAPRIL MALEATE [Suspect]
     Indication: CARDIOVASCULAR DISORDER
  4. ISOSORBIDE MONONITRATE [Suspect]
     Indication: CARDIOVASCULAR DISORDER

REACTIONS (9)
  - BLOOD PRESSURE DIASTOLIC DECREASED [None]
  - BRADYCARDIA [None]
  - DEPRESSED LEVEL OF CONSCIOUSNESS [None]
  - DIALYSIS [None]
  - DIARRHOEA [None]
  - ELECTROCARDIOGRAM QRS COMPLEX PROLONGED [None]
  - HYPERKALAEMIA [None]
  - RENAL FAILURE ACUTE [None]
  - SINOATRIAL BLOCK [None]
